FAERS Safety Report 13912213 (Version 1)
Quarter: 2017Q3

REPORT INFORMATION
  Report Type: Spontaneous
  Country: MX (occurrence: MX)
  Receive Date: 20170828
  Receipt Date: 20170828
  Transmission Date: 20171127
  Serious: Yes (Other)
  Sender: FDA-Public Use
  Company Number: MX-BAYER-2017-159418

PATIENT
  Sex: Male

DRUGS (1)
  1. ALEVE [Suspect]
     Active Substance: NAPROXEN SODIUM
     Indication: BACK PAIN
     Dosage: 10 DF, ONCE

REACTIONS (8)
  - Feeling abnormal [Unknown]
  - Tachycardia [Unknown]
  - Apparent death [Unknown]
  - Product label issue [None]
  - Product label confusion [Unknown]
  - Unevaluable event [Unknown]
  - Overdose [Unknown]
  - Adverse event [Unknown]
